FAERS Safety Report 13814539 (Version 1)
Quarter: 2017Q3

REPORT INFORMATION
  Report Type: Spontaneous
  Country: PT (occurrence: PT)
  Receive Date: 20170731
  Receipt Date: 20170731
  Transmission Date: 20171127
  Serious: Yes (Disabling, Other)
  Sender: FDA-Public Use
  Company Number: PT-AUROBINDO-AUR-APL-2017-37700

PATIENT
  Age: 62 Year
  Sex: Female
  Weight: 64 kg

DRUGS (6)
  1. SERENAL                            /00036302/ [Concomitant]
     Indication: ANXIOLYTIC THERAPY
     Dosage: 15 MG, ONCE A DAY
     Route: 048
  2. METFORMIN [Concomitant]
     Active Substance: METFORMIN HYDROCHLORIDE
     Indication: DIABETES MELLITUS
     Dosage: 500 MG, TWO TIMES A DAY
     Route: 048
  3. OLMESARTANMEDOXOMILO/HYDROCHLOROTHIAZIDE AUROVITAS FILM COATED TABLETS [Suspect]
     Active Substance: HYDROCHLOROTHIAZIDE\OLMESARTAN MEDOXOMIL
     Indication: HYPERTENSION
     Dosage: 32.5 MG, ONCE A DAY
     Route: 048
     Dates: start: 20170609, end: 20170629
  4. SINVASTATINA [Concomitant]
     Active Substance: SIMVASTATIN
     Indication: DYSLIPIDAEMIA
     Dosage: 20 MG, ONCE A DAY
     Route: 048
  5. TRAZONE AC [Concomitant]
     Indication: PRODUCT USED FOR UNKNOWN INDICATION
     Dosage: 150 MG, ONCE A DAY
     Route: 048
  6. TRIFLUSAL [Concomitant]
     Active Substance: TRIFLUSAL
     Indication: PROPHYLAXIS
     Dosage: 300 MG, ONCE A DAY
     Route: 048

REACTIONS (2)
  - Product substitution issue [Unknown]
  - Blood pressure inadequately controlled [Recovered/Resolved]

NARRATIVE: CASE EVENT DATE: 20170609
